FAERS Safety Report 5084512-6 (Version None)
Quarter: 2006Q3

REPORT INFORMATION
  Report Type: 
  Country: None (occurrence: None)
  Receive Date: 20060821
  Receipt Date: 20060809
  Transmission Date: 20061208
  Serious: Yes (Hospitalization)
  Sender: FDA-Public Use
  Company Number: FR-GILEAD-2006-0010025

PATIENT
  Age: 41 Year
  Sex: Female

DRUGS (6)
  1. VIREAD [Suspect]
     Dates: start: 20030615, end: 20060322
  2. VIDEX [Suspect]
     Route: 048
     Dates: start: 20030615, end: 20060322
  3. VIRAMUNE [Suspect]
     Route: 048
     Dates: end: 20060322
  4. SERETIDE [Concomitant]
     Indication: ASTHMA
  5. ZITHROMAX [Concomitant]
     Indication: BRONCHOPULMONARY ASPERGILLOSIS ALLERGIC
  6. VFEND [Concomitant]

REACTIONS (2)
  - DEPRESSION [None]
  - IMPAIRED GASTRIC EMPTYING [None]
